FAERS Safety Report 7942851-2 (Version None)
Quarter: 2011Q4

REPORT INFORMATION
  Report Type: 
  Country: None (occurrence: None)
  Receive Date: 20111122
  Receipt Date: 20110728
  Transmission Date: 20120403
  Serious: No
  Sender: FDA-Public Use
  Company Number: PHHY2011US68822

PATIENT
  Age: 36 Year
  Sex: Female
  Weight: 77.1115 kg

DRUGS (5)
  1. GILENYA [Suspect]
     Dosage: 0.5 MG, QD, ORAL
     Route: 048
  2. LOESTRIN (ETHINYLESTRADIOL, NORETHISTERONE ACETATE) TABLET, 1/20-21 UK [Concomitant]
  3. CONTRACEPTIVES (NO INGREDIENTS/SUBSTANCES) [Concomitant]
  4. DEXEDRINE (DEXAMFETAMINE SULFATE) TABLET [Concomitant]
  5. BACLOFEN [Concomitant]

REACTIONS (1)
  - AMENORRHOEA [None]
